FAERS Safety Report 11070159 (Version 1)
Quarter: 2015Q2

REPORT INFORMATION
  Report Type: Spontaneous
  Country: DK (occurrence: DK)
  Receive Date: 20150427
  Receipt Date: 20150427
  Transmission Date: 20150821
  Serious: Yes (Other)
  Sender: FDA-Public Use
  Company Number: DK-ASTRAZENECA-2015SE36324

PATIENT
  Age: 23324 Day
  Sex: Male

DRUGS (1)
  1. BUPIVACAIN [Suspect]
     Active Substance: BUPIVACAINE
     Indication: EPIDURAL ANAESTHESIA
     Route: 008
     Dates: start: 20120531

REACTIONS (7)
  - Cerebral thrombosis [Unknown]
  - Hemiplegia [Unknown]
  - Nervous system disorder [Recovered/Resolved]
  - Sepsis [Unknown]
  - Arachnoid cyst [Recovered/Resolved]
  - Cystitis [Unknown]
  - Spinal cord compression [Recovered/Resolved]

NARRATIVE: CASE EVENT DATE: 20140103
